FAERS Safety Report 4930769-9 (Version None)
Quarter: 2006Q1

REPORT INFORMATION
  Report Type: 
  Country: None (occurrence: None)
  Receive Date: 20060302
  Receipt Date: 20060223
  Transmission Date: 20060701
  Serious: Yes (Other)
  Sender: FDA-Public Use
  Company Number: JP-SANOFI-SYNTHELABO-F01200600520

PATIENT
  Age: 64 Year
  Sex: Male
  Weight: 61 kg

DRUGS (6)
  1. OXALIPLATIN [Suspect]
     Indication: COLON CANCER
     Dosage: 130 MG/BODY=80.2MG/M2, INFUSION D1
     Route: 042
     Dates: start: 20050928, end: 20050928
  2. OXALIPLATIN [Suspect]
     Dosage: 100 MG/BODY=61.7 MG/M2
     Route: 042
     Dates: start: 20051025, end: 20051025
  3. FLUOROURACIL [Suspect]
     Dosage: 500 MG/BODY=308.6 MG/M2 IN BOLUS THEN 900 MG/BODY=555.6 MG/M2 AS CONTINUOUS INFUSION, D1+2
     Route: 042
     Dates: start: 20050928, end: 20050929
  4. FLUOROURACIL [Suspect]
     Dosage: 250 MG/BODY=154.3 MG/M2 IN BOLUS THEN 750 MG/BODY=463 MG/M2 AS CONTINUOUS INFUSION
     Route: 042
     Dates: start: 20051025, end: 20051026
  5. CALCIUM LEVOFOLINATE [Suspect]
     Dosage: 150 MG/BODY=92.6 MG/M2, INFUSION D1+2)
     Route: 042
     Dates: start: 20050928, end: 20050929
  6. CALCIUM LEVOFOLINATE [Suspect]
     Dosage: 100 MG/BODY=61.7 MG/M2
     Route: 042
     Dates: start: 20051025, end: 20051026

REACTIONS (5)
  - ASCITES [None]
  - HEPATIC FAILURE [None]
  - OEDEMA [None]
  - PLEURAL EFFUSION [None]
  - PROTHROMBIN TIME PROLONGED [None]
